FAERS Safety Report 17037208 (Version 1)
Quarter: 2019Q4

REPORT INFORMATION
  Report Type: Spontaneous
  Country: US (occurrence: US)
  Receive Date: 20191115
  Receipt Date: 20191115
  Transmission Date: 20200122
  Serious: Yes (Death, Hospitalization)
  Sender: FDA-Public Use
  Company Number: US-FRESENIUS KABI-FK201912587

PATIENT
  Age: 70 Year
  Sex: Male

DRUGS (3)
  1. PORFIMER SODIUM [Suspect]
     Active Substance: PORFIMER SODIUM
     Indication: ADENOSQUAMOUS CELL LUNG CANCER
     Route: 065
  2. PACLITAXEL (MANUFACTURER UNKNOWN) [Suspect]
     Active Substance: PACLITAXEL
     Indication: ADENOSQUAMOUS CELL LUNG CANCER
     Dosage: ENDOBRONCHIAL INJECTION THERAPY
     Route: 065
  3. NIVOLUMAB [Concomitant]
     Active Substance: NIVOLUMAB
     Indication: SQUAMOUS CELL CARCINOMA OF LUNG
     Route: 065

REACTIONS (2)
  - Haemoptysis [Fatal]
  - Bronchial fistula [Fatal]
